FAERS Safety Report 5443485-4 (Version None)
Quarter: 2007Q3

REPORT INFORMATION
  Report Type: 
  Country: None (occurrence: None)
  Receive Date: 20070905
  Receipt Date: 20070827
  Transmission Date: 20080115
  Serious: Yes (Hospitalization)
  Sender: FDA-Public Use
  Company Number: JP-ROCHE-514229

PATIENT
  Age: 68 Year
  Sex: Female

DRUGS (17)
  1. PEG-INTERFERON ALFA 2A (RO 25-8310) [Suspect]
     Route: 058
     Dates: start: 20041004, end: 20050609
  2. PEG-INTERFERON ALFA 2A (RO 25-8310) [Suspect]
     Route: 058
     Dates: start: 20050623, end: 20051208
  3. PEG-INTERFERON ALFA 2A (RO 25-8310) [Suspect]
     Route: 058
     Dates: start: 20051215, end: 20060515
  4. PEG-INTERFERON ALFA 2A (RO 25-8310) [Suspect]
     Route: 058
     Dates: start: 20060523, end: 20060619
  5. PEG-INTERFERON ALFA 2A (RO 25-8310) [Suspect]
     Route: 058
     Dates: start: 20060627
  6. NEO-MINOPHAGEN C [Concomitant]
     Route: 042
     Dates: end: 20060515
  7. UBIRON [Concomitant]
     Route: 048
  8. PROMAC [Concomitant]
     Route: 048
     Dates: end: 20050609
  9. NORVASC [Concomitant]
     Route: 048
  10. FAMOTIDINE [Concomitant]
     Route: 048
     Dates: end: 20050609
  11. SENNOSIDE [Concomitant]
     Route: 048
     Dates: end: 20050317
  12. ACTIT [Concomitant]
     Route: 041
     Dates: start: 20041004, end: 20041004
  13. ACTIT [Concomitant]
     Route: 041
     Dates: start: 20041011, end: 20041011
  14. ADELAVIN [Concomitant]
     Dosage: DRUG REPORTED AS ADELAVIN-NO. 9.
     Route: 041
     Dates: start: 20041004, end: 20041004
  15. ADELAVIN [Concomitant]
     Dosage: DRUG REPORTED AS ADELAVIN-NO. 9.
     Route: 041
     Dates: start: 20041011, end: 20041011
  16. PANTOSIN [Concomitant]
     Dosage: DOSE FORM REPORTED AS ORAL FORMULATION (NOT OTHERWISE SPECIFIED).
     Route: 048
     Dates: start: 20050707
  17. DAI-KENCHU-TO [Concomitant]
     Dosage: DOSE FORM: ORAL FORMULATION (NOT OTHERWISE SPECIFIED).
     Route: 048
     Dates: start: 20050707

REACTIONS (1)
  - ILEUS [None]
